FAERS Safety Report 17324107 (Version 2)
Quarter: 2020Q1

REPORT INFORMATION
  Report Type: Report from Study
  Country: JP (occurrence: JP)
  Receive Date: 20200127
  Receipt Date: 20200217
  Transmission Date: 20200409
  Serious: Yes (Life-Threatening, Hospitalization, Other)
  Sender: FDA-Public Use
  Company Number: JP-GLAXOSMITHKLINE-JP2019JPN184295

PATIENT
  Sex: Male
  Weight: 52 kg

DRUGS (27)
  1. PREDONINE [Concomitant]
     Active Substance: PREDNISOLONE
     Dosage: 30 MG, 1D
     Dates: start: 20190620, end: 20190829
  2. PREDONINE [Concomitant]
     Active Substance: PREDNISOLONE
     Dosage: 25 MG, 1D
     Dates: start: 20190830, end: 20191003
  3. BONALON [Concomitant]
     Active Substance: ALENDRONATE SODIUM
     Indication: OSTEOPOROSIS PROPHYLAXIS
     Dosage: UNK
  4. LANSOPRAZOLE-OD TABLETS [Concomitant]
     Indication: PROPHYLAXIS AGAINST GASTROINTESTINAL ULCER
     Dosage: UNK
  5. VOGLIBOSE OD TABLET [Concomitant]
     Dosage: UNK
  6. PREDONINE [Concomitant]
     Active Substance: PREDNISOLONE
     Indication: EOSINOPHILIC GRANULOMATOSIS WITH POLYANGIITIS
     Dosage: 20 MG, 1D
     Dates: start: 20190606, end: 20190619
  7. FLUTIFORM AEROSOL [Concomitant]
     Active Substance: FLUTICASONE PROPIONATE\FORMOTEROL FUMARATE
     Dosage: 500 ?G, 1D
  8. ANTEBATE LOTION [Concomitant]
     Indication: EOSINOPHILIC GRANULOMATOSIS WITH POLYANGIITIS
     Dosage: UNK
  9. TENELIA TABLETS [Concomitant]
     Dosage: UNK
  10. MEPOLIZUMAB [Suspect]
     Active Substance: MEPOLIZUMAB
     Dosage: 300 MG, QD
     Route: 058
     Dates: start: 20191004, end: 20191004
  11. FLUITRAN [Concomitant]
     Active Substance: TRICHLORMETHIAZIDE
     Indication: STASIS DERMATITIS
     Dosage: UNK
  12. LANDSEN [Concomitant]
     Active Substance: CLONAZEPAM
     Indication: EOSINOPHILIC GRANULOMATOSIS WITH POLYANGIITIS
     Dosage: UNK
  13. FOLIAMIN TABLETS [Concomitant]
     Dosage: UNK
  14. METFORMIN [Concomitant]
     Active Substance: METFORMIN HYDROCHLORIDE
     Dosage: UNK
  15. MEPOLIZUMAB [Suspect]
     Active Substance: MEPOLIZUMAB
     Indication: EOSINOPHILIC GRANULOMATOSIS WITH POLYANGIITIS
     Dosage: 300 MG, QD
     Route: 058
     Dates: start: 20190704, end: 20190704
  16. MEPOLIZUMAB [Suspect]
     Active Substance: MEPOLIZUMAB
     Dosage: 300 MG, QD
     Route: 058
     Dates: start: 20190830, end: 20190830
  17. PREDONINE [Concomitant]
     Active Substance: PREDNISOLONE
     Dosage: 20 MG, 1D
     Dates: start: 20191004
  18. CELECOX TABLETS [Concomitant]
     Indication: EOSINOPHILIC GRANULOMATOSIS WITH POLYANGIITIS
     Dosage: UNK
  19. SPIRIVA RESPIMAT [Concomitant]
     Active Substance: TIOTROPIUM BROMIDE
     Dosage: UNK
  20. ANTEBATE OINTMENT [Concomitant]
     Active Substance: BETAMETHASONE BUTYRATE PROPIONATE
     Indication: EOSINOPHILIC GRANULOMATOSIS WITH POLYANGIITIS
     Dosage: UNK
  21. RYZODEG 70/30 [Concomitant]
     Active Substance: INSULIN ASPART\INSULIN DEGLUDEC
     Dosage: 10 IU, 1D
  22. RYZODEG 70/30 [Concomitant]
     Active Substance: INSULIN ASPART\INSULIN DEGLUDEC
     Dosage: 12 IU, 1D
     Dates: start: 20191211
  23. HIRUDOID SOFT OINTMENT [Concomitant]
     Indication: EOSINOPHILIC GRANULOMATOSIS WITH POLYANGIITIS
     Dosage: UNK
  24. MEPOLIZUMAB [Suspect]
     Active Substance: MEPOLIZUMAB
     Dosage: 300 MG, QD
     Route: 058
     Dates: start: 20190802, end: 20190802
  25. LIMAPROST ALFADEX TABLETS [Concomitant]
     Dosage: UNK
  26. RYZODEG 70/30 [Concomitant]
     Active Substance: INSULIN ASPART\INSULIN DEGLUDEC
     Dosage: 12 IU, 1D
     Dates: start: 20191004
  27. RYZODEG 70/30 [Concomitant]
     Active Substance: INSULIN ASPART\INSULIN DEGLUDEC
     Dosage: 12 IU, 1D
     Dates: start: 20191108

REACTIONS (6)
  - Abscess [Recovering/Resolving]
  - Lung neoplasm malignant [Not Recovered/Not Resolved]
  - Psoas abscess [Recovering/Resolving]
  - Pneumonia [Recovering/Resolving]
  - Glycosylated haemoglobin increased [Recovering/Resolving]
  - Infection [Recovering/Resolving]

NARRATIVE: CASE EVENT DATE: 2019
